FAERS Safety Report 16617332 (Version 1)
Quarter: 2019Q3

REPORT INFORMATION
  Report Type: Report from Study
  Country: CZ (occurrence: CZ)
  Receive Date: 20190723
  Receipt Date: 20190723
  Transmission Date: 20191004
  Serious: Yes (Death, Other)
  Sender: FDA-Public Use
  Company Number: CZ-MYLANLABS-2019M1067996

PATIENT
  Age: 54 Year
  Sex: Male

DRUGS (2)
  1. NIVOLUMAB [Suspect]
     Active Substance: NIVOLUMAB
     Indication: RENAL CELL CARCINOMA
     Dosage: 3 MG/KG, Q2WK
     Route: 065
     Dates: start: 20160420, end: 201706
  2. EVEROLIMUS. [Suspect]
     Active Substance: EVEROLIMUS
     Indication: RENAL CELL CARCINOMA
     Dosage: 10 MILLIGRAM, QD
     Route: 065

REACTIONS (10)
  - Adrenal gland cancer metastatic [Unknown]
  - Rash [Unknown]
  - Decreased appetite [Unknown]
  - Pruritus [Unknown]
  - Metastases to lung [Unknown]
  - Aphthous ulcer [Unknown]
  - Malignant neoplasm progression [Unknown]
  - Sepsis [Fatal]
  - Erythema [Unknown]
  - Fatigue [Unknown]

NARRATIVE: CASE EVENT DATE: 201606
